FAERS Safety Report 4949198-7 (Version None)
Quarter: 2006Q1

REPORT INFORMATION
  Report Type: 
  Country: None (occurrence: None)
  Receive Date: 20060321
  Receipt Date: 20050817
  Transmission Date: 20060701
  Serious: Yes (Hospitalization)
  Sender: FDA-Public Use
  Company Number: PHBS2005NZ16062

PATIENT
  Sex: Female

DRUGS (1)
  1. GLEEVEC [Suspect]
     Indication: GASTROINTESTINAL STROMAL TUMOUR
     Dosage: UNK, UNK
     Route: 048
     Dates: end: 20050801

REACTIONS (4)
  - CHOLELITHIASIS [None]
  - DIABETIC KETOACIDOSIS [None]
  - PANCREATITIS [None]
  - PANCREATOBILIARY SPHINCTEROTOMY [None]
